FAERS Safety Report 7105148-9 (Version None)
Quarter: 2010Q4

REPORT INFORMATION
  Report Type: 
  Country: None (occurrence: None)
  Receive Date: 20101108
  Receipt Date: 20101021
  Transmission Date: 20110411
  Serious: Yes (Other)
  Sender: FDA-Public Use
  Company Number: AMAG201000385

PATIENT
  Age: 61 Year
  Sex: Male

DRUGS (14)
  1. FERAHEME [Suspect]
     Indication: IRON DEFICIENCY ANAEMIA
     Dosage: 330 MG, SINGLE, INTRAVENOUS
     Route: 042
     Dates: start: 20101021, end: 20101021
  2. LEVEMIR [Concomitant]
  3. JANVIA [Concomitant]
  4. ACTOS [Concomitant]
  5. FUROSEMIDE (FUROSEMIDE SODIUM) [Concomitant]
  6. BENICAR HCT [Concomitant]
  7. VYTORIN [Concomitant]
  8. SULAR [Concomitant]
  9. FENOFIBRATE [Concomitant]
  10. ASPIRIN [Concomitant]
  11. COENZYME Q10 [Concomitant]
  12. PROCRIT [Concomitant]
  13. VITAMIN D [Concomitant]
  14. KIONEX (SODIUM POLYSTYRENE SULFONATE) [Concomitant]

REACTIONS (11)
  - ARRHYTHMIA [None]
  - FATIGUE [None]
  - FLUSHING [None]
  - HEART RATE DECREASED [None]
  - HEART RATE INCREASED [None]
  - HYPERHIDROSIS [None]
  - HYPOTENSION [None]
  - LOSS OF CONSCIOUSNESS [None]
  - MOANING [None]
  - MYOCLONUS [None]
  - PRURITUS [None]
